FAERS Safety Report 20705614 (Version 1)
Quarter: 2022Q2

REPORT INFORMATION
  Report Type: Spontaneous
  Country: US (occurrence: None)
  Receive Date: 20220413
  Receipt Date: 20220413
  Transmission Date: 20220721
  Serious: No
  Sender: FDA-Public Use
  Company Number: 2022A140638

PATIENT
  Sex: Female
  Weight: 61.2 kg

DRUGS (1)
  1. BUDESONIDE\FORMOTEROL [Suspect]
     Active Substance: BUDESONIDE\FORMOTEROL
     Indication: Post-acute COVID-19 syndrome
     Dosage: 80/4.5MCG, 2 PUFFS, 2 TIMES A DAY
     Route: 055

REACTIONS (2)
  - Dyspnoea [Unknown]
  - Product taste abnormal [Unknown]
